FAERS Safety Report 5662370-6 (Version None)
Quarter: 2008Q1

REPORT INFORMATION
  Report Type: 
  Country: None (occurrence: None)
  Receive Date: 20080310
  Receipt Date: 20080225
  Transmission Date: 20080703
  Serious: No
  Sender: FDA-Public Use
  Company Number: 002#1#2008-00078

PATIENT
  Age: 75 Year
  Sex: Female

DRUGS (2)
  1. NEUPRO [Suspect]
     Indication: PARKINSON'S DISEASE
     Dosage: 6MG/24H, 1 IN 1 D,TRANSDERMAL : 6MG/24H, 1 IN 1 D,TRANSDERMAL
     Route: 062
     Dates: start: 20071112
  2. NEUPRO [Suspect]
     Indication: PARKINSON'S DISEASE
     Dosage: 6MG/24H, 1 IN 1 D,TRANSDERMAL : 6MG/24H, 1 IN 1 D,TRANSDERMAL
     Route: 062
     Dates: start: 20080215

REACTIONS (1)
  - PHARMACEUTICAL PRODUCT COMPLAINT [None]
